FAERS Safety Report 5468047-4 (Version None)
Quarter: 2007Q3

REPORT INFORMATION
  Report Type: 
  Country: None (occurrence: None)
  Receive Date: 20070919
  Receipt Date: 20070910
  Transmission Date: 20080115
  Serious: Yes (Hospitalization, Other)
  Sender: FDA-Public Use
  Company Number: M-07-504

PATIENT
  Age: 53 Year
  Sex: Female
  Weight: 59 kg

DRUGS (3)
  1. ALBUTEIN [Suspect]
     Indication: SUPPLEMENTATION THERAPY
     Dosage: 50 ML; DAILY; IV
     Route: 042
     Dates: start: 20070828, end: 20070829
  2. OMEPRAZOLE [Concomitant]
  3. CELECOXIB [Concomitant]

REACTIONS (6)
  - CHEST X-RAY ABNORMAL [None]
  - DIARRHOEA [None]
  - DYSPNOEA [None]
  - HYPOXIA [None]
  - MELAENA [None]
  - PYREXIA [None]
